FAERS Safety Report 6182946-X (Version None)
Quarter: 2009Q2

REPORT INFORMATION
  Report Type: 
  Country: None (occurrence: None)
  Receive Date: 20090507
  Receipt Date: 20090430
  Transmission Date: 20091009
  Serious: Yes (Other)
  Sender: FDA-Public Use
  Company Number: CA-ASTRAZENECA-2009UW01424

PATIENT
  Sex: Male

DRUGS (5)
  1. CRESTOR [Suspect]
     Route: 048
  2. ATENOLOL [Suspect]
     Route: 048
  3. ASPIRIN [Suspect]
  4. PLAVIX [Suspect]
     Route: 048
  5. ELTROXIN [Concomitant]

REACTIONS (7)
  - ASTHENIA [None]
  - BLOOD CREATINE PHOSPHOKINASE INCREASED [None]
  - CYANOSIS [None]
  - GAIT DISTURBANCE [None]
  - INFLUENZA LIKE ILLNESS [None]
  - PAIN IN EXTREMITY [None]
  - POLYMYALGIA RHEUMATICA [None]
